FAERS Safety Report 4967061-2 (Version None)
Quarter: 2006Q2

REPORT INFORMATION
  Report Type: 
  Country: None (occurrence: None)
  Receive Date: 20060408
  Receipt Date: 20060330
  Transmission Date: 20061013
  Serious: Yes (Hospitalization)
  Sender: FDA-Public Use
  Company Number: US-ABBOTT-06P-163-0329517-00

PATIENT
  Age: 85 Year
  Sex: Male

DRUGS (2)
  1. HYTRIN [Suspect]
     Indication: BENIGN PROSTATIC HYPERPLASIA
     Route: 048
     Dates: end: 20060328
  2. HYTRIN [Suspect]
     Route: 048
     Dates: start: 20060329

REACTIONS (2)
  - MENINGIOMA [None]
  - SYNCOPE [None]
